FAERS Safety Report 24308274 (Version 2)
Quarter: 2024Q3

REPORT INFORMATION
  Report Type: Spontaneous
  Country: FR (occurrence: FR)
  Receive Date: 20240911
  Receipt Date: 20240923
  Transmission Date: 20241017
  Serious: Yes (Hospitalization)
  Sender: TEVA
  Company Number: FR-TEVA-VS-3241103

PATIENT
  Age: 66 Year
  Sex: Female

DRUGS (6)
  1. BISOPROLOL [Suspect]
     Active Substance: BISOPROLOL\BISOPROLOL FUMARATE
     Indication: Atrial fibrillation
     Route: 065
  2. MIDAZOLAM [Suspect]
     Active Substance: MIDAZOLAM
     Indication: Procedural pain
     Route: 065
  3. LIDOCAINE [Suspect]
     Active Substance: LIDOCAINE
     Indication: Local anaesthesia
     Route: 058
  4. IODIXANOL [Suspect]
     Active Substance: IODIXANOL
     Indication: Venogram
     Dosage: 320MG /ML; 5ML DILUTED BY 5ML NORMAL SALINE THROUGH THE IPSILATERAL PERIPHERAL VENOUS ACCESS, DUR...
     Route: 042
  5. ISOSORBIDE DINITRATE [Suspect]
     Active Substance: ISOSORBIDE DINITRATE
     Indication: Vasospasm
     Dosage: 1 MG FOLLOWED BY 1MG 5MIN LATER
     Route: 042
  6. SODIUM CHLORIDE [Suspect]
     Active Substance: SODIUM CHLORIDE
     Indication: Vasospasm
     Route: 065

REACTIONS (2)
  - Vasospasm [Not Recovered/Not Resolved]
  - Drug ineffective [Unknown]
